FAERS Safety Report 7474609-5 (Version None)
Quarter: 2011Q2

REPORT INFORMATION
  Report Type: 
  Country: None (occurrence: None)
  Receive Date: 20110503
  Receipt Date: 20110419
  Transmission Date: 20111010
  Serious: Yes (Hospitalization)
  Sender: FDA-Public Use
  Company Number: 029651

PATIENT
  Sex: Female
  Weight: 57 kg

DRUGS (6)
  1. LACOSAMIDE [Suspect]
     Dosage: 50 MG QD ORAL, (50 MG BID ORAL), 100 MG BID ORAL), (200 MG BID ORAL)
     Route: 048
     Dates: start: 20110208, end: 20110208
  2. LACOSAMIDE [Suspect]
     Dosage: 50 MG QD ORAL, (50 MG BID ORAL), 100 MG BID ORAL), (200 MG BID ORAL)
     Route: 048
     Dates: start: 20110209, end: 20110201
  3. LACOSAMIDE [Suspect]
     Dosage: 50 MG QD ORAL, (50 MG BID ORAL), 100 MG BID ORAL), (200 MG BID ORAL)
     Route: 048
     Dates: start: 20110222, end: 20110101
  4. LACOSAMIDE [Suspect]
     Dosage: 50 MG QD ORAL, (50 MG BID ORAL), 100 MG BID ORAL), (200 MG BID ORAL)
     Route: 048
     Dates: start: 20110315
  5. KEPPRA [Suspect]
     Dosage: 1000 MG BID, ORAL
     Route: 048
     Dates: end: 20110315
  6. DEPAKENE [Suspect]
     Dosage: 500 MG QD ORAL
     Route: 048

REACTIONS (2)
  - CLONUS [None]
  - STATUS EPILEPTICUS [None]
